FAERS Safety Report 21855205 (Version 2)
Quarter: 2023Q1

REPORT INFORMATION
  Report Type: Spontaneous
  Country: US (occurrence: None)
  Receive Date: 20230112
  Receipt Date: 20230116
  Transmission Date: 20230417
  Serious: Yes (Other)
  Sender: FDA-Public Use
  Company Number: US-ROCHE-3262734

PATIENT
  Age: 10 Year
  Sex: Male

DRUGS (10)
  1. XOLAIR [Suspect]
     Active Substance: OMALIZUMAB
     Indication: Urticaria chronic
     Route: 058
     Dates: start: 20200616
  2. XOLAIR [Suspect]
     Active Substance: OMALIZUMAB
  3. XOLAIR [Suspect]
     Active Substance: OMALIZUMAB
  4. XOLAIR [Suspect]
     Active Substance: OMALIZUMAB
     Indication: Idiopathic angioedema
     Dosage: ONGOING:NO
     Route: 058
     Dates: start: 20200625, end: 20200730
  5. XOLAIR [Suspect]
     Active Substance: OMALIZUMAB
  6. XOLAIR [Suspect]
     Active Substance: OMALIZUMAB
  7. PEPCID [Concomitant]
     Active Substance: FAMOTIDINE
  8. EPINEPHRINE [Concomitant]
     Active Substance: EPINEPHRINE
  9. BENADRYL [Concomitant]
     Active Substance: DIPHENHYDRAMINE HYDROCHLORIDE
  10. SOLU-MEDROL [Concomitant]
     Active Substance: METHYLPREDNISOLONE SODIUM SUCCINATE

REACTIONS (4)
  - Peripheral swelling [Unknown]
  - Fall [Unknown]
  - Urticaria [Unknown]
  - Angioedema [Unknown]

NARRATIVE: CASE EVENT DATE: 20220626
